FAERS Safety Report 8172504 (Version 5)
Quarter: 2013Q1

REPORT INFORMATION
  Report Type: Report from Study
  Country: US (occurrence: US)
  Receive Date: 20111007
  Receipt Date: 20130124
  Transmission Date: 20140127
  Serious: Yes (Hospitalization, Other)
  Sender: FDA-Public Use
  Company Number: US-JNJFOC-20111000285

PATIENT
  Age: 15 Year
  Sex: Female
  Weight: 54.2 kg

DRUGS (14)
  1. REMICADE [Suspect]
     Indication: INFLAMMATORY BOWEL DISEASE
     Route: 042
     Dates: start: 20110630
  2. REMICADE [Suspect]
     Indication: INFLAMMATORY BOWEL DISEASE
     Route: 042
     Dates: start: 20110713
  3. REMICADE [Suspect]
     Indication: INFLAMMATORY BOWEL DISEASE
     Route: 042
     Dates: start: 20110805
  4. HYDROCORTISONE [Suspect]
     Indication: COLITIS ULCERATIVE
  5. 5-ASA [Concomitant]
     Indication: INFLAMMATORY BOWEL DISEASE
  6. MULTIVITAMINS [Concomitant]
  7. IRON [Concomitant]
  8. PREDNISONE [Concomitant]
  9. ANTIBIOTICS [Concomitant]
     Indication: INFLAMMATORY BOWEL DISEASE
  10. PRILOSEC [Concomitant]
  11. MAGNESIUM [Concomitant]
  12. PANTOPRAZOLE [Concomitant]
  13. OLANZAPINE [Concomitant]
  14. LITHIUM [Concomitant]

REACTIONS (2)
  - Colitis ulcerative [Recovered/Resolved with Sequelae]
  - Anxiety [Not Recovered/Not Resolved]
